FAERS Safety Report 11170650 (Version 1)
Quarter: 2015Q2

REPORT INFORMATION
  Report Type: Spontaneous
  Country: US (occurrence: None)
  Receive Date: 20150515
  Receipt Date: 20150515
  Transmission Date: 20150821
  Serious: Yes (Other)
  Sender: FDA-Public Use
  Company Number: 2015006968

PATIENT
  Sex: Male
  Weight: 68 kg

DRUGS (6)
  1. ATORVASTATIN CALCIUM (ATORVASTATIN CALCIUM) [Concomitant]
     Active Substance: ATORVASTATIN CALCIUM
  2. LISINOPRIL (LISINOPRIL) [Concomitant]
     Active Substance: LISINOPRIL
  3. OMEPRAZOLE (OMEPRAZOLE) [Concomitant]
     Active Substance: OMEPRAZOLE
  4. VITAMIN D (COLECALCIFEROL) [Concomitant]
  5. ASPIRIN (ACETYLSALICYLIC ACID) [Concomitant]
     Active Substance: ASPIRIN
  6. CIMZIA [Suspect]
     Active Substance: CERTOLIZUMAB PEGOL
     Indication: RHEUMATOID ARTHRITIS
     Dosage: 400 MG,  MONTHLY (QM), SUBCUTANEOUS
     Route: 058

REACTIONS (2)
  - Respiratory tract infection [None]
  - Drug ineffective [None]
